FAERS Safety Report 10250725 (Version 1)
Quarter: 2014Q2

REPORT INFORMATION
  Report Type: Spontaneous
  Country: CA (occurrence: CA)
  Receive Date: 20140620
  Receipt Date: 20140620
  Transmission Date: 20141212
  Serious: Yes (Other)
  Sender: FDA-Public Use
  Company Number: CA-ELI_LILLY_AND_COMPANY-CA201406003496

PATIENT
  Sex: Male
  Weight: 79.37 kg

DRUGS (2)
  1. HUMALOG LISPRO [Suspect]
     Indication: TYPE 1 DIABETES MELLITUS
     Dosage: UNK
     Route: 065
  2. LANTUS [Concomitant]
     Indication: TYPE 1 DIABETES MELLITUS
     Dosage: 35 DF, EACH EVENING
     Route: 065

REACTIONS (3)
  - Hypoglycaemic unconsciousness [Unknown]
  - Lower limb fracture [Unknown]
  - Blood glucose decreased [Unknown]
